FAERS Safety Report 25652073 (Version 2)
Quarter: 2025Q4

REPORT INFORMATION
  Report Type: Report from Study
  Country: EU (occurrence: EU)
  Receive Date: 20250806
  Receipt Date: 20251016
  Transmission Date: 20260117
  Serious: Yes (Other)
  Sender: ABBVIE
  Company Number: EU-ABBVIE-6107709

PATIENT
  Age: 56 Year
  Sex: Male

DRUGS (2)
  1. CARBIDOPA [Suspect]
     Active Substance: CARBIDOPA
     Indication: Product used for unknown indication
     Route: 050
     Dates: start: 20240425
  2. CARBIDOPA [Suspect]
     Active Substance: CARBIDOPA

REACTIONS (5)
  - Lumbar spinal stenosis [Unknown]
  - Device issue [Recovered/Resolved]
  - Confusional state [Not Recovered/Not Resolved]
  - Urinary retention [Not Recovered/Not Resolved]
  - Impaired healing [Recovered/Resolved]

NARRATIVE: CASE EVENT DATE: 20241101
